FAERS Safety Report 19349668 (Version 1)
Quarter: 2021Q2

REPORT INFORMATION
  Report Type: Spontaneous
  Country: US (occurrence: US)
  Receive Date: 20210531
  Receipt Date: 20210531
  Transmission Date: 20210717
  Serious: No
  Sender: FDA-Public Use
  Company Number: None

PATIENT
  Age: 66 Year
  Sex: Female

DRUGS (1)
  1. HUMIRA [Suspect]
     Active Substance: ADALIMUMAB
     Indication: PSORIASIS
     Dosage: 40MG/0.8ML EVERY 2 WEEKS SQ
     Route: 058
     Dates: start: 20210115

REACTIONS (1)
  - Skin haemorrhage [None]

NARRATIVE: CASE EVENT DATE: 20210315
